FAERS Safety Report 4475275-3 (Version None)
Quarter: 2004Q4

REPORT INFORMATION
  Report Type: 
  Country: None (occurrence: None)
  Receive Date: 20041013
  Receipt Date: 20041013
  Transmission Date: 20050328
  Serious: Yes (Hospitalization)
  Sender: FDA-Public Use
  Company Number: None

PATIENT
  Age: 68 Year
  Sex: Male
  Weight: 86.637 kg

DRUGS (13)
  1. DIGOXIN [Suspect]
     Indication: CARDIAC FAILURE CONGESTIVE
     Dosage: 0.125MG DAILY PO
     Route: 048
  2. AMIODARONE HCL [Suspect]
     Indication: ARRHYTHMIA
     Dosage: 200MG DAILY PO
     Route: 048
  3. KCL TAB [Concomitant]
  4. AMIODARONE [Concomitant]
  5. PLAVIX [Concomitant]
  6. AMARYL [Concomitant]
  7. MAGOX [Concomitant]
  8. LEVOXYL [Concomitant]
  9. DIGOXIN [Concomitant]
  10. BUMEX [Concomitant]
  11. ASPIRIN [Concomitant]
  12. ATIVAN [Concomitant]
  13. DARVOCET [Concomitant]

REACTIONS (5)
  - CARDIAC FAILURE CONGESTIVE [None]
  - CHOLECYSTITIS [None]
  - CONDITION AGGRAVATED [None]
  - HYPOXIA [None]
  - THERAPEUTIC AGENT TOXICITY [None]
